FAERS Safety Report 5013194-4 (Version None)
Quarter: 2006Q2

REPORT INFORMATION
  Report Type: 
  Country: None (occurrence: None)
  Receive Date: 20060530
  Receipt Date: 20060316
  Transmission Date: 20061013
  Serious: Yes (Hospitalization)
  Sender: FDA-Public Use
  Company Number: US-GLAXOSMITHKLINE-A0598024A

PATIENT
  Age: 20 Year
  Sex: Male

DRUGS (2)
  1. WELLBUTRIN [Suspect]
     Indication: DEPRESSION
     Route: 048
  2. AMBIEN [Concomitant]
     Route: 048

REACTIONS (2)
  - HALLUCINATION [None]
  - INTENTIONAL OVERDOSE [None]
